FAERS Safety Report 11439464 (Version 1)
Quarter: 2015Q3

REPORT INFORMATION
  Report Type: Spontaneous
  Country: US (occurrence: US)
  Receive Date: 20150901
  Receipt Date: 20150901
  Transmission Date: 20151125
  Serious: No
  Sender: FDA-Public Use
  Company Number: US-ROCHE-1130489

PATIENT
  Sex: Female

DRUGS (3)
  1. RIBASPHERE [Suspect]
     Active Substance: RIBAVIRIN
     Indication: CHRONIC HEPATITIS
     Route: 065
     Dates: start: 20120806
  2. TELAPREVIR [Suspect]
     Active Substance: TELAPREVIR
     Indication: CHRONIC HEPATITIS
     Route: 065
     Dates: start: 20120806
  3. PEGASYS [Suspect]
     Active Substance: PEGINTERFERON ALFA-2A
     Indication: CHRONIC HEPATITIS C
     Route: 065
     Dates: start: 20120806

REACTIONS (7)
  - Nausea [Unknown]
  - Speech disorder [Unknown]
  - Headache [Unknown]
  - Vertigo [Unknown]
  - Chills [Unknown]
  - Tremor [Unknown]
  - Pyrexia [Unknown]
